FAERS Safety Report 8541095-3 (Version None)
Quarter: 2012Q3

REPORT INFORMATION
  Report Type: 
  Country: None (occurrence: None)
  Receive Date: 20120726
  Receipt Date: 20110817
  Transmission Date: 20120928
  Serious: No
  Sender: FDA-Public Use
  Company Number: US-ASTRAZENECA-2011SE49343

PATIENT
  Age: 35 Year
  Sex: Female
  Weight: 90.7 kg

DRUGS (4)
  1. SEROQUEL [Suspect]
     Route: 048
  2. SEROQUEL [Suspect]
     Indication: BIPOLAR DISORDER
     Route: 048
     Dates: start: 20090101
  3. PAXIL [Concomitant]
  4. VALIUM [Concomitant]

REACTIONS (4)
  - FATIGUE [None]
  - WEIGHT INCREASED [None]
  - AMNESIA [None]
  - NIGHTMARE [None]
